FAERS Safety Report 18239630 (Version 3)
Quarter: 2020Q3

REPORT INFORMATION
  Report Type: Report from Study
  Country: None (occurrence: US)
  Receive Date: 20200907
  Receipt Date: 20200930
  Transmission Date: 20201103
  Serious: Yes (Hospitalization, Other)
  Sender: FDA-Public Use
  Company Number: US-ABBVIE-20K-163-3453542-00

PATIENT
  Sex: Male
  Weight: 133.93 kg

DRUGS (5)
  1. METFORMIN [Concomitant]
     Active Substance: METFORMIN HYDROCHLORIDE
     Indication: TYPE 2 DIABETES MELLITUS
  2. ATORVASTATIN [Concomitant]
     Active Substance: ATORVASTATIN
     Indication: BLOOD CHOLESTEROL INCREASED
  3. HUMIRA [Suspect]
     Active Substance: ADALIMUMAB
     Indication: PSORIATIC ARTHROPATHY
     Route: 058
     Dates: start: 2018, end: 202006
  4. HUMIRA [Suspect]
     Active Substance: ADALIMUMAB
     Indication: RHEUMATOID ARTHRITIS
     Route: 058
     Dates: start: 202008
  5. LISINOPRIL. [Concomitant]
     Active Substance: LISINOPRIL
     Indication: HYPERTENSION

REACTIONS (9)
  - Cartilage atrophy [Recovered/Resolved]
  - Blood glucose increased [Recovered/Resolved]
  - Cataract [Recovering/Resolving]
  - Oxygen saturation decreased [Unknown]
  - Gait disturbance [Not Recovered/Not Resolved]
  - Arthropathy [Unknown]
  - Cartilage atrophy [Recovering/Resolving]
  - Arthralgia [Not Recovered/Not Resolved]
  - Post procedural complication [Not Recovered/Not Resolved]

NARRATIVE: CASE EVENT DATE: 2018
